FAERS Safety Report 5114607-X (Version None)
Quarter: 2006Q3

REPORT INFORMATION
  Report Type: 
  Country: None (occurrence: None)
  Receive Date: 20060926
  Receipt Date: 20060915
  Transmission Date: 20061208
  Serious: Yes (Hospitalization)
  Sender: FDA-Public Use
  Company Number: PHNR2006AU01239

PATIENT
  Age: 32 Year
  Sex: Male

DRUGS (5)
  1. SIMVASTATIN [Suspect]
     Indication: METABOLIC DISORDER
     Dosage: 40 MG, QD
     Route: 048
     Dates: start: 20050715, end: 20050915
  2. ACETAMINOPHEN W/ CODEINE [Concomitant]
     Indication: BACK PAIN
  3. AMITRIPTYLINE HYDROCHLORIDE [Concomitant]
     Indication: BACK PAIN
  4. NU-LAX [Concomitant]
  5. VOLTAREN [Suspect]
     Indication: BACK PAIN
     Dosage: 50 MG, Q48H
     Dates: end: 20050915

REACTIONS (6)
  - ARTHRALGIA [None]
  - BLOOD CREATINE PHOSPHOKINASE INCREASED [None]
  - HYPERKALAEMIA [None]
  - NAUSEA [None]
  - RENAL FAILURE ACUTE [None]
  - VOMITING [None]
